FAERS Safety Report 4941877-0 (Version None)
Quarter: 2006Q1

REPORT INFORMATION
  Report Type: 
  Country: None (occurrence: None)
  Receive Date: 20060306
  Receipt Date: 20060222
  Transmission Date: 20060701
  Serious: Yes (Hospitalization, Other)
  Sender: FDA-Public Use
  Company Number: 2005131114

PATIENT
  Age: 50 Year
  Sex: Female

DRUGS (13)
  1. CELEBREX [Suspect]
     Indication: ARTHRITIS
     Dosage: 400 MG (200 MG, 2 IN 1 D), UNKNOWN
     Route: 065
  2. CELEBREX [Suspect]
     Indication: PAIN
     Dosage: 400 MG (200 MG, 2 IN 1 D), UNKNOWN
     Route: 065
  3. WELLBUTRIN [Concomitant]
  4. EFFEXOR [Concomitant]
  5. RISPERDAL [Concomitant]
  6. ALBUTEROL [Concomitant]
  7. SINGULAIR [Concomitant]
  8. KLONOPIN [Concomitant]
  9. NASONEX [Concomitant]
  10. ADVAIR DISKUS 100/50 [Concomitant]
  11. TRIAMTERENE (TRIAMTERENE) [Concomitant]
  12. VICODIN [Concomitant]
  13. WARFARIN SODIUM [Concomitant]

REACTIONS (18)
  - ARTHRALGIA [None]
  - BIPOLAR DISORDER [None]
  - CONDITION AGGRAVATED [None]
  - DEEP VEIN THROMBOSIS [None]
  - DEPRESSION [None]
  - DYSPNOEA [None]
  - INFLAMMATORY BOWEL DISEASE [None]
  - INTENTIONAL OVERDOSE [None]
  - INTERVERTEBRAL DISC DISORDER [None]
  - INTERVERTEBRAL DISC PROTRUSION [None]
  - LIGAMENT INJURY [None]
  - POST PROCEDURAL COMPLICATION [None]
  - RESTLESS LEGS SYNDROME [None]
  - SCIATICA [None]
  - SUICIDAL IDEATION [None]
  - SUICIDE ATTEMPT [None]
  - THROMBOSIS [None]
  - WEIGHT INCREASED [None]
